FAERS Safety Report 8236555 (Version 7)
Quarter: 2019Q1

REPORT INFORMATION
  Report Type: Spontaneous
  Country: DK (occurrence: DK)
  Receive Date: 20111108
  Receipt Date: 20190131
  Transmission Date: 20190418
  Serious: Yes (Death, Hospitalization, Other)
  Sender: FDA-Public Use
  Company Number: DK-TEVA-307344ISR

PATIENT
  Age: 72 Year
  Sex: Female

DRUGS (9)
  1. AMLODIPINE [Concomitant]
     Active Substance: AMLODIPINE BESYLATE
     Indication: PRODUCT USED FOR UNKNOWN INDICATION
  2. MIRTAZAPINE. [Suspect]
     Active Substance: MIRTAZAPINE
     Indication: SCHIZOAFFECTIVE DISORDER
     Dosage: 30 MILLIGRAM DAILY;
     Route: 048
     Dates: start: 2011, end: 20111023
  3. CENTYL MED KALIUMKLORID [Concomitant]
     Active Substance: BENDROFLUMETHIAZIDE\POTASSIUM CHLORIDE
     Indication: PRODUCT USED FOR UNKNOWN INDICATION
     Dosage: DOSE 1 PCS DAILY. START DATE IS UNKNOWN
     Dates: end: 20111023
  4. FRAGMIN [Concomitant]
     Active Substance: DALTEPARIN SODIUM
     Indication: PRODUCT USED FOR UNKNOWN INDICATION
  5. ZELDOX [Suspect]
     Active Substance: ZIPRASIDONE
     Indication: SCHIZOAFFECTIVE DISORDER
     Dosage: 80 MILLIGRAM DAILY;
     Route: 048
     Dates: end: 20111023
  6. LITAREX (LITHIUM CITRATE) [Suspect]
     Active Substance: LITHIUM CITRATE
     Indication: SCHIZOAFFECTIVE DISORDER
     Dosage: DOSE: 1+0+0+1.5, STYRKE: 6 MMOL LI+
     Route: 048
     Dates: end: 20111023
  7. CIPRALEX [Suspect]
     Active Substance: ESCITALOPRAM OXALATE
     Indication: SCHIZOAFFECTIVE DISORDER
     Dosage: 30 MILLIGRAM DAILY;
     Route: 048
     Dates: end: 20111023
  8. FERRO DURETTER [Concomitant]
     Dosage: 100 MILLIGRAM DAILY;
     Dates: end: 20111023
  9. ALPRAZOLAM. [Concomitant]
     Active Substance: ALPRAZOLAM
     Indication: PRODUCT USED FOR UNKNOWN INDICATION
     Dosage: .5 MILLIGRAM DAILY; START DATE IS UNKNOWN
     Dates: end: 20111022

REACTIONS (14)
  - Lactic acidosis [Fatal]
  - Hepatic cirrhosis [Fatal]
  - Lacunar infarction [Fatal]
  - Neuroleptic malignant syndrome [Fatal]
  - Rhabdomyolysis [Fatal]
  - Internal fixation of fracture [Fatal]
  - Pyrexia [Fatal]
  - Organ failure [Fatal]
  - Fall [Fatal]
  - Cardiac hypertrophy [Fatal]
  - Humerus fracture [Fatal]
  - Dyspnoea [Fatal]
  - Hypertension [Fatal]
  - Renal failure [Fatal]

NARRATIVE: CASE EVENT DATE: 20111021
